FAERS Safety Report 25238899 (Version 2)
Quarter: 2025Q2

REPORT INFORMATION
  Report Type: Spontaneous
  Country: US (occurrence: US)
  Receive Date: 20250425
  Receipt Date: 20250509
  Transmission Date: 20250717
  Serious: Yes (Death, Life-Threatening, Hospitalization, Other)
  Sender: Steriscience PTE
  Company Number: US-STERISCIENCE B.V.-2025-ST-000791

PATIENT
  Age: 88 Year
  Sex: Male

DRUGS (9)
  1. MEROPENEM [Suspect]
     Active Substance: MEROPENEM
     Indication: Bacterial infection
     Route: 065
  2. MEROPENEM [Suspect]
     Active Substance: MEROPENEM
     Indication: Pseudomonas infection
  3. VANCOMYCIN [Suspect]
     Active Substance: VANCOMYCIN
     Indication: Clostridium difficile infection
     Route: 048
  4. VANCOMYCIN [Suspect]
     Active Substance: VANCOMYCIN
     Route: 054
  5. METRONIDAZOLE [Suspect]
     Active Substance: METRONIDAZOLE
     Indication: Clostridium difficile infection
     Route: 042
  6. METRONIDAZOLE [Suspect]
     Active Substance: METRONIDAZOLE
     Indication: Megacolon
  7. TIGECYCLINE [Suspect]
     Active Substance: TIGECYCLINE
     Indication: Clostridium difficile infection
     Route: 042
  8. TIGECYCLINE [Suspect]
     Active Substance: TIGECYCLINE
     Indication: Megacolon
  9. CEFTRIAXONE [Concomitant]
     Active Substance: CEFTRIAXONE
     Indication: Escherichia urinary tract infection
     Route: 065

REACTIONS (8)
  - Clostridium difficile infection [Fatal]
  - Megacolon [Fatal]
  - Drug ineffective [Fatal]
  - Colitis ischaemic [Fatal]
  - Blood creatinine increased [Fatal]
  - Ileus [Fatal]
  - Hypotension [Fatal]
  - Lactic acidosis [Fatal]
